FAERS Safety Report 18210464 (Version 1)
Quarter: 2020Q3

REPORT INFORMATION
  Report Type: Spontaneous
  Country: US (occurrence: US)
  Receive Date: 20200829
  Receipt Date: 20200829
  Transmission Date: 20201103
  Serious: No
  Sender: FDA-Public Use
  Company Number: US-SA-2020SA227910

PATIENT

DRUGS (1)
  1. APIDRA [Suspect]
     Active Substance: INSULIN GLULISINE
     Indication: GESTATIONAL DIABETES
     Dosage: 6 IU, TID
     Route: 065

REACTIONS (2)
  - Product storage error [Unknown]
  - Liquid product physical issue [Unknown]
